FAERS Safety Report 16240166 (Version 3)
Quarter: 2019Q4

REPORT INFORMATION
  Report Type: Spontaneous
  Country: US (occurrence: US)
  Receive Date: 20190425
  Receipt Date: 20191029
  Transmission Date: 20200122
  Serious: Yes (Hospitalization, Other)
  Sender: FDA-Public Use
  Company Number: US-ASTRAZENECA-2018SF34327

PATIENT
  Age: 24568 Day
  Sex: Female
  Weight: 93.4 kg

DRUGS (22)
  1. NEXIUM [Suspect]
     Active Substance: ESOMEPRAZOLE MAGNESIUM
     Route: 048
     Dates: start: 20110726, end: 201601
  2. LISINOPRIL. [Concomitant]
     Active Substance: LISINOPRIL
     Indication: BLOOD PRESSURE ABNORMAL
     Dates: start: 20160712
  3. VALIUM [Concomitant]
     Active Substance: DIAZEPAM
     Indication: ANXIETY
     Dates: start: 20170120
  4. ADVAIR DISKUS [Concomitant]
     Active Substance: FLUTICASONE PROPIONATE\SALMETEROL XINAFOATE
     Indication: BRONCHITIS CHRONIC
     Dates: start: 20070628
  5. PROTONIX [Suspect]
     Active Substance: PANTOPRAZOLE SODIUM
     Route: 065
     Dates: start: 2006, end: 2016
  6. PROTONIX [Suspect]
     Active Substance: PANTOPRAZOLE SODIUM
     Route: 065
     Dates: start: 20151203, end: 201601
  7. PROPRANOLOL [Concomitant]
     Active Substance: PROPRANOLOL HYDROCHLORIDE
     Indication: BLOOD PRESSURE ABNORMAL
     Dates: start: 20170122
  8. ALBUTEROL. [Concomitant]
     Active Substance: ALBUTEROL
     Indication: BRONCHOSPASM
     Dates: start: 20070425
  9. LEVATHYROXINE [Concomitant]
     Indication: HYPOTHYROIDISM
     Dates: start: 20060130, end: 201605
  10. OXYCODONE [Concomitant]
     Active Substance: OXYCODONE
     Indication: ANALGESIC THERAPY
     Dates: start: 20070719
  11. FLEXERIL [Concomitant]
     Active Substance: CYCLOBENZAPRINE HYDROCHLORIDE
  12. NEXIUM [Suspect]
     Active Substance: ESOMEPRAZOLE MAGNESIUM
     Route: 048
     Dates: start: 2006, end: 2016
  13. OMEPRAZOLE. [Suspect]
     Active Substance: OMEPRAZOLE
     Route: 065
     Dates: start: 20091221, end: 201004
  14. LIPITOR [Concomitant]
     Active Substance: ATORVASTATIN CALCIUM
     Indication: BLOOD CHOLESTEROL INCREASED
  15. SERTRALINE [Concomitant]
     Active Substance: SERTRALINE HYDROCHLORIDE
     Indication: DEPRESSION
     Dates: start: 20161014
  16. NEXIUM [Suspect]
     Active Substance: ESOMEPRAZOLE MAGNESIUM
     Route: 048
     Dates: start: 20160323
  17. PREVACID [Suspect]
     Active Substance: LANSOPRAZOLE
     Dosage: GENERIC
     Route: 065
     Dates: start: 20090206, end: 200903
  18. ZOLPIDEM [Concomitant]
     Active Substance: ZOLPIDEM TARTRATE
     Indication: INSOMNIA
     Dates: start: 20171001
  19. NEXIUM [Suspect]
     Active Substance: ESOMEPRAZOLE MAGNESIUM
     Route: 048
     Dates: start: 20150304
  20. PREVACID [Suspect]
     Active Substance: LANSOPRAZOLE
     Route: 065
     Dates: start: 2006, end: 2016
  21. PREVACID [Suspect]
     Active Substance: LANSOPRAZOLE
     Route: 065
     Dates: start: 20060925, end: 200902
  22. ASPIRIN. [Concomitant]
     Active Substance: ASPIRIN
     Indication: BLOOD PRESSURE ABNORMAL

REACTIONS (5)
  - Chronic kidney disease [Not Recovered/Not Resolved]
  - Nephrogenic anaemia [Unknown]
  - Nephrosclerosis [Unknown]
  - Acute kidney injury [Recovered/Resolved]
  - Renal failure [Unknown]

NARRATIVE: CASE EVENT DATE: 20140417
